FAERS Safety Report 20163066 (Version 1)
Quarter: 2021Q4

REPORT INFORMATION
  Report Type: Spontaneous
  Country: FR (occurrence: FR)
  Receive Date: 20211209
  Receipt Date: 20211209
  Transmission Date: 20220304
  Serious: Yes (Hospitalization)
  Sender: FDA-Public Use
  Company Number: FR-AFSSAPS-NY20215076

PATIENT
  Age: 51 Year
  Sex: Female

DRUGS (3)
  1. OLANZAPINE [Suspect]
     Active Substance: OLANZAPINE
     Indication: Mental disorder
     Dosage: 15 MILLIGRAM, DAILY
     Route: 048
     Dates: start: 2019
  2. DEPAKOTE [Concomitant]
     Active Substance: DIVALPROEX SODIUM
     Indication: Mental disorder
     Dosage: 500 MILLIGRAM, BID
     Route: 048
  3. VENLAFAXINE [Concomitant]
     Active Substance: VENLAFAXINE HYDROCHLORIDE
     Indication: Mental disorder
     Dosage: 150 MILLIGRAM, DAILY
     Route: 048

REACTIONS (1)
  - Palmoplantar pustulosis [Recovered/Resolved]

NARRATIVE: CASE EVENT DATE: 20190101
